FAERS Safety Report 18304455 (Version 1)
Quarter: 2020Q3

REPORT INFORMATION
  Report Type: Spontaneous
  Country: RU (occurrence: RU)
  Receive Date: 20200923
  Receipt Date: 20200923
  Transmission Date: 20201103
  Serious: Yes (Other)
  Sender: FDA-Public Use
  Company Number: RU-PFIZER INC-2020365954

PATIENT
  Age: 46 Year
  Sex: Female

DRUGS (1)
  1. TOFACITINIB CITRATE [Suspect]
     Active Substance: TOFACITINIB CITRATE
     Dosage: 5 MG, 2X/DAY
     Dates: start: 2020

REACTIONS (4)
  - Haematochezia [Unknown]
  - Body temperature increased [Unknown]
  - Condition aggravated [Unknown]
  - Faeces soft [Unknown]

NARRATIVE: CASE EVENT DATE: 2020
